FAERS Safety Report 6328968-7 (Version None)
Quarter: 2009Q3

REPORT INFORMATION
  Report Type: 
  Country: None (occurrence: None)
  Receive Date: 20090818
  Receipt Date: 20090714
  Transmission Date: 20100115
  Serious: No
  Sender: FDA-Public Use
  Company Number: WAES 0907USA02066

PATIENT
  Age: 61 Year
  Sex: Male

DRUGS (12)
  1. JANUVIA [Suspect]
     Indication: TYPE 2 DIABETES MELLITUS
     Dosage: 100 MG/DAILY/PO
     Route: 048
     Dates: start: 20090101
  2. ANTARA (MICRONIZED) [Concomitant]
  3. AVALIDE [Concomitant]
  4. AVANDIA [Concomitant]
  5. LOVAZA [Concomitant]
  6. NEXIUM [Concomitant]
  7. SYNTHROID [Concomitant]
  8. WELCHOL [Concomitant]
  9. ASPIRIN [Concomitant]
  10. CALCIUM [Concomitant]
  11. IRON [Concomitant]
  12. VITAMIN D [Concomitant]

REACTIONS (1)
  - GYNAECOMASTIA [None]
